FAERS Safety Report 12966192 (Version 1)
Quarter: 2016Q4

REPORT INFORMATION
  Report Type: Spontaneous
  Country: US (occurrence: US)
  Receive Date: 20161118
  Receipt Date: 20161118
  Transmission Date: 20170207
  Serious: Yes (Hospitalization)
  Sender: FDA-Public Use
  Company Number: None

PATIENT
  Age: 76 Year
  Sex: Male
  Weight: 57.8 kg

DRUGS (1)
  1. RIVAROXABAN [Suspect]
     Active Substance: RIVAROXABAN
     Indication: ATRIAL FIBRILLATION
     Route: 048
     Dates: start: 20160322, end: 20160729

REACTIONS (9)
  - Acute kidney injury [None]
  - Renal impairment [None]
  - Iron deficiency anaemia [None]
  - Hypotension [None]
  - Nausea [None]
  - Haemorrhage [None]
  - Vomiting [None]
  - Dizziness [None]
  - International normalised ratio increased [None]

NARRATIVE: CASE EVENT DATE: 20160729
